FAERS Safety Report 24856591 (Version 1)
Quarter: 2025Q1

REPORT INFORMATION
  Report Type: Spontaneous
  Country: US (occurrence: None)
  Receive Date: 20250116
  Receipt Date: 20250116
  Transmission Date: 20250408
  Serious: No
  Sender: FDA-CTU
  Company Number: None

PATIENT
  Age: 66 Year
  Sex: Female

DRUGS (1)
  1. PROLIA [Suspect]
     Active Substance: DENOSUMAB
     Dates: start: 20241114

REACTIONS (4)
  - Musculoskeletal stiffness [None]
  - Arthralgia [None]
  - Muscle spasms [None]
  - Bone pain [None]

NARRATIVE: CASE EVENT DATE: 20241123
